FAERS Safety Report 8224112-X (Version None)
Quarter: 2012Q1

REPORT INFORMATION
  Report Type: 
  Country: None (occurrence: None)
  Receive Date: 20120320
  Receipt Date: 20120320
  Transmission Date: 20120608
  Serious: No
  Sender: FDA-Public Use
  Company Number: None

PATIENT
  Age: 75 Year
  Sex: Male
  Weight: 91.7 kg

DRUGS (2)
  1. WARFARIN SODIUM [Suspect]
     Dosage: MG PO
     Route: 048
     Dates: start: 20120203, end: 20120213
  2. HEPARIN SODIUM 1,000 UNITS IN DEXTROSE 5% [Suspect]
     Dates: start: 20120203, end: 20120213

REACTIONS (5)
  - GASTRIC HAEMORRHAGE [None]
  - EPISTAXIS [None]
  - HAEMOPTYSIS [None]
  - HAEMORRHAGE [None]
  - ANAEMIA [None]
